FAERS Safety Report 12496129 (Version 1)
Quarter: 2016Q2

REPORT INFORMATION
  Report Type: Spontaneous
  Country: FR (occurrence: FR)
  Receive Date: 20160624
  Receipt Date: 20160624
  Transmission Date: 20160815
  Serious: Yes (Other)
  Sender: FDA-Public Use
  Company Number: FR-PFIZER INC-2016304972

PATIENT
  Age: 88 Year
  Sex: Female

DRUGS (15)
  1. ERBITUX [Suspect]
     Active Substance: CETUXIMAB
     Dosage: 425 MG, WEEKLY
     Route: 042
     Dates: end: 20160509
  2. AZANTAC [Concomitant]
     Active Substance: RANITIDINE HYDROCHLORIDE
     Indication: PREMEDICATION
     Dosage: 150 MG, CYCLIC
     Route: 042
     Dates: start: 20151127, end: 20160509
  3. PRAVASTATIN SODIUM. [Concomitant]
     Active Substance: PRAVASTATIN SODIUM
  4. ERBITUX [Suspect]
     Active Substance: CETUXIMAB
     Indication: MALIGNANT MELANOMA
     Dosage: 670 MG, WEEKLY
     Route: 042
     Dates: start: 20151127
  5. POLARAMINE [Concomitant]
     Active Substance: DEXCHLORPHENIRAMINE MALEATE
     Indication: PREMEDICATION
     Dosage: 10 MG, CYCLIC
     Route: 042
     Dates: start: 20151127, end: 20160509
  6. DOMPERIDONE [Concomitant]
     Active Substance: DOMPERIDONE
  7. RYTHMODAN /00271802/ [Concomitant]
     Active Substance: DISOPYRAMIDE
  8. CARBOPLATINE HOSPIRA [Suspect]
     Active Substance: CARBOPLATIN
     Indication: MALIGNANT MELANOMA
     Dosage: 300 MG EVERY 3 WEEKS
     Route: 042
     Dates: start: 20151127, end: 20160509
  9. MOVICOL [Concomitant]
     Active Substance: POLYETHYLENE GLYCOL 3350\POTASSIUM CHLORIDE\SODIUM BICARBONATE\SODIUM CHLORIDE
  10. METHYLPREDNISOLONE MYLAN /00049602/ [Concomitant]
     Active Substance: METHYLPREDNISOLONE SODIUM SUCCINATE
     Indication: PREMEDICATION
     Dosage: 64 MG, CYCLIC
     Dates: start: 20151127, end: 20160509
  11. ONDANSETRON ACCORD [Concomitant]
     Active Substance: ONDANSETRON
     Indication: PREMEDICATION
     Dosage: 8 MG, CYCLIC
     Route: 042
     Dates: start: 20151127, end: 20160509
  12. LEVOTHYROX [Concomitant]
     Active Substance: LEVOTHYROXINE
  13. DAFALGAN [Concomitant]
     Active Substance: ACETAMINOPHEN
  14. FUCIDINE /00065701/ [Concomitant]
     Active Substance: FUSIDIC ACID
  15. XOLAAM [Concomitant]
     Active Substance: ALUMINUM HYDROXIDE\MAGNESIUM HYDROXIDE

REACTIONS (3)
  - Skin fissures [Not Recovered/Not Resolved]
  - Skin erosion [Not Recovered/Not Resolved]
  - Rash pustular [Not Recovered/Not Resolved]

NARRATIVE: CASE EVENT DATE: 20160201
